FAERS Safety Report 5802812-6 (Version None)
Quarter: 2008Q2

REPORT INFORMATION
  Report Type: 
  Country: None (occurrence: None)
  Receive Date: 20080626
  Receipt Date: 20070626
  Transmission Date: 20081010
  Serious: Yes (Other)
  Sender: FDA-Public Use
  Company Number: 38434

PATIENT
  Age: 52 Year
  Sex: Male
  Weight: 111.1313 kg

DRUGS (12)
  1. ADENOSINE [Suspect]
     Indication: CORONARY ARTERY DISEASE
     Dosage: 90 MCG/ICX1
     Route: 022
     Dates: start: 20070626
  2. INTEGRILIN [Concomitant]
  3. HEPARIN [Concomitant]
  4. OXYGEN [Concomitant]
  5. VERSED [Concomitant]
  6. FENTANYL-25 [Concomitant]
  7. LIDOCAINE [Concomitant]
  8. NITROGLYCERIN IC [Concomitant]
  9. HEPARIN [Concomitant]
  10. VERAPAMIL [Concomitant]
  11. LASIX [Concomitant]
  12. PLAVIX [Concomitant]

REACTIONS (1)
  - DRUG INEFFECTIVE [None]
